FAERS Safety Report 9113613 (Version 1)
Quarter: 2013Q1

REPORT INFORMATION
  Report Type: Spontaneous
  Country: FI (occurrence: FI)
  Receive Date: 20130208
  Receipt Date: 20130208
  Transmission Date: 20140127
  Serious: Yes (Other)
  Sender: FDA-Public Use
  Company Number: FI-ELI_LILLY_AND_COMPANY-FI201301009226

PATIENT
  Age: 13 Year
  Sex: Male
  Weight: 65 kg

DRUGS (5)
  1. STRATTERA [Suspect]
     Indication: ATTENTION DEFICIT/HYPERACTIVITY DISORDER
     Dosage: 25 MG, EACH EVENING
     Dates: start: 201212
  2. STRATTERA [Suspect]
     Dosage: 10 MG, EACH MORNING
  3. STRATTERA [Suspect]
     Dosage: 18 MG, EACH EVENING
  4. OMEGA 3 [Concomitant]
  5. MULTIVITAMIN [Concomitant]

REACTIONS (6)
  - Anger [Not Recovered/Not Resolved]
  - Nausea [Not Recovered/Not Resolved]
  - Malaise [Not Recovered/Not Resolved]
  - Decreased appetite [Not Recovered/Not Resolved]
  - Apathy [Not Recovered/Not Resolved]
  - Middle insomnia [Not Recovered/Not Resolved]
